FAERS Safety Report 7234342-1 (Version None)
Quarter: 2011Q1

REPORT INFORMATION
  Report Type: 
  Country: None (occurrence: None)
  Receive Date: 20110119
  Receipt Date: 20110111
  Transmission Date: 20110831
  Serious: Yes (Disabling, Other)
  Sender: FDA-Public Use
  Company Number: US-GENENTECH-309533

PATIENT
  Sex: Female
  Weight: 96.145 kg

DRUGS (12)
  1. SINGULAIR [Concomitant]
     Indication: ASTHMA
  2. AMITRIPTYLINE [Concomitant]
     Indication: HYPERSENSITIVITY
     Dosage: UNK
     Dates: start: 20050101
  3. REGLAN [Concomitant]
     Indication: GASTROOESOPHAGEAL REFLUX DISEASE
  4. ALVESCO [Concomitant]
     Indication: ASTHMA
  5. EYE DROPS NOS [Concomitant]
     Indication: HYPERSENSITIVITY
     Dosage: UNK
     Dates: start: 20070101
  6. ZEGERID [Concomitant]
     Indication: GASTROOESOPHAGEAL REFLUX DISEASE
     Dosage: UNK
     Dates: start: 20080101
  7. XOPENEX [Concomitant]
     Indication: ASTHMA
  8. SINGULAIR [Concomitant]
     Indication: HYPERSENSITIVITY
     Dosage: UNK
     Dates: start: 20050101
  9. SPIRIVA [Concomitant]
     Indication: ASTHMA
     Dosage: UNK
     Dates: start: 20040101
  10. IMMUNOTHERAPY (AEROALLERGENS + DUST MITE) [Concomitant]
     Indication: HYPERSENSITIVITY
  11. OMALIZUMAB [Suspect]
     Indication: ASTHMA
     Dosage: 300 MG, Q4W
     Dates: start: 20060922
  12. NEXIUM [Concomitant]
     Indication: GASTROOESOPHAGEAL REFLUX DISEASE

REACTIONS (1)
  - ANAPHYLACTIC REACTION [None]
